FAERS Safety Report 7997560 (Version 7)
Quarter: 2013Q2

REPORT INFORMATION
  Report Type: Report from Study
  Country: DE (occurrence: DE)
  Receive Date: 20110620
  Receipt Date: 20130405
  Transmission Date: 20140414
  Serious: Yes (Hospitalization, Other)
  Sender: FDA-Public Use
  Company Number: DE-ABBOTT-11P-062-0732122-00

PATIENT
  Age: 53 Year
  Sex: Female

DRUGS (2)
  1. HUMIRA 40 MG/0.8 ML PEN [Suspect]
     Indication: CROHN^S DISEASE
     Route: 058
     Dates: start: 20070926
  2. SEROQUEL [Concomitant]
     Indication: PRODUCT USED FOR UNKNOWN INDICATION

REACTIONS (7)
  - Intestinal stenosis [Not Recovered/Not Resolved]
  - Nasopharyngitis [Not Recovered/Not Resolved]
  - Ileus [Not Recovered/Not Resolved]
  - Drug ineffective [Not Recovered/Not Resolved]
  - Crohn^s disease [Not Recovered/Not Resolved]
  - Abscess intestinal [Not Recovered/Not Resolved]
  - Nasopharyngitis [Not Recovered/Not Resolved]
